FAERS Safety Report 7027066-7 (Version None)
Quarter: 2010Q3

REPORT INFORMATION
  Report Type: 
  Country: None (occurrence: None)
  Receive Date: 20100929
  Receipt Date: 20100921
  Transmission Date: 20110219
  Serious: Yes (Life-Threatening)
  Sender: FDA-Public Use
  Company Number: 2010MA002879

PATIENT
  Age: 62 Year
  Sex: Female

DRUGS (4)
  1. SULFATRIM [Suspect]
     Indication: HYPERTENSION
     Dosage: QAM;PO
     Route: 048
     Dates: end: 20100914
  2. FLUOXETINE [Concomitant]
  3. LEVOTHYROXINE SODIUM [Concomitant]
  4. SODIUM [Concomitant]

REACTIONS (2)
  - HYPOKALAEMIA [None]
  - SYNCOPE [None]
